FAERS Safety Report 16454411 (Version 1)
Quarter: 2019Q2

REPORT INFORMATION
  Report Type: Spontaneous
  Country: US (occurrence: US)
  Receive Date: 20190619
  Receipt Date: 20190619
  Transmission Date: 20190711
  Serious: Yes (Other)
  Sender: FDA-Public Use
  Company Number: US-ROCHE-2223273

PATIENT
  Age: 15 Year
  Sex: Female
  Weight: 49.94 kg

DRUGS (6)
  1. METHOTREXATE. [Concomitant]
     Active Substance: METHOTREXATE
     Indication: JUVENILE IDIOPATHIC ARTHRITIS
     Dosage: 0.07 ML; OPPOSITE THIGH INJECTION SITE OF ACTEMRA ;ONGOING: YES
     Route: 058
  2. ACTEMRA [Suspect]
     Active Substance: TOCILIZUMAB
     Indication: JUVENILE IDIOPATHIC ARTHRITIS
     Dosage: 162MG/0.9ML; ALTERNATING THIGHS EVERY DOSE ;ONGOING: YES
     Route: 058
     Dates: start: 201806
  3. ZOFRAN [Concomitant]
     Active Substance: ONDANSETRON HYDROCHLORIDE
     Dosage: ADMINISTERED WITH METHOTREXATE ;ONGOING: YES
     Route: 065
  4. ACTEMRA [Suspect]
     Active Substance: TOCILIZUMAB
     Route: 058
     Dates: start: 20181126
  5. ENBREL [Concomitant]
     Active Substance: ETANERCEPT
  6. FOLIC ACID. [Concomitant]
     Active Substance: FOLIC ACID
     Dosage: NOT GIVEN DAY OF ACTEMRA AND METHOTREXATE DOSES ;ONGOING: YES
     Route: 065

REACTIONS (7)
  - Injection site pain [Unknown]
  - Injection site nodule [Recovered/Resolved]
  - Injection site warmth [Recovered/Resolved]
  - Pyrexia [Recovered/Resolved]
  - Product quality issue [Unknown]
  - Infection [Unknown]
  - Injection site erythema [Recovered/Resolved]

NARRATIVE: CASE EVENT DATE: 20181112
